FAERS Safety Report 5311929-4 (Version None)
Quarter: 2007Q2

REPORT INFORMATION
  Report Type: 
  Country: None (occurrence: None)
  Receive Date: 20070430
  Receipt Date: 20060412
  Transmission Date: 20071010
  Serious: No
  Sender: FDA-Public Use
  Company Number: 2006UW06545

PATIENT
  Age: 42 Year
  Sex: Female
  Weight: 86.2 kg

DRUGS (6)
  1. NEXIUM [Suspect]
     Indication: DYSPEPSIA
     Route: 048
     Dates: start: 20060301
  2. NEXIUM [Suspect]
     Indication: ULCER
     Route: 048
     Dates: start: 20060301
  3. NEXIUM [Suspect]
     Indication: GASTROOESOPHAGEAL REFLUX DISEASE
     Route: 048
     Dates: start: 20060301
  4. LEVOXINE [Concomitant]
  5. LIBRAX [Concomitant]
  6. REGLAN [Concomitant]

REACTIONS (3)
  - ACCIDENTAL OVERDOSE [None]
  - HEADACHE [None]
  - NAUSEA [None]
